FAERS Safety Report 19534958 (Version 2)
Quarter: 2021Q3

REPORT INFORMATION
  Report Type: Report from Study
  Country: IL (occurrence: IL)
  Receive Date: 20210713
  Receipt Date: 20210722
  Transmission Date: 20211014
  Serious: Yes (Hospitalization)
  Sender: FDA-Public Use
  Company Number: IL-TAKEDA-2021TUS043006

PATIENT
  Sex: Female
  Weight: 104 kg

DRUGS (3)
  1. POMALIDOMIDE [Suspect]
     Active Substance: POMALIDOMIDE
     Indication: PLASMA CELL MYELOMA REFRACTORY
     Dosage: 4 MILLIGRAM
     Route: 065
     Dates: start: 20210525
  2. IXAZOMIB [Suspect]
     Active Substance: IXAZOMIB
     Indication: PLASMA CELL MYELOMA REFRACTORY
     Dosage: 3 MILLIGRAM
     Route: 065
     Dates: start: 20210525
  3. DEXAMETHASONE. [Suspect]
     Active Substance: DEXAMETHASONE
     Indication: PLASMA CELL MYELOMA REFRACTORY
     Dosage: 10 MILLIGRAM
     Route: 065
     Dates: start: 20210525

REACTIONS (1)
  - Urinary tract infection [Recovered/Resolved]

NARRATIVE: CASE EVENT DATE: 20210702
